FAERS Safety Report 9577576 (Version 1)
Quarter: 2013Q4

REPORT INFORMATION
  Report Type: Spontaneous
  Country: US (occurrence: US)
  Receive Date: 20131001
  Receipt Date: 20131001
  Transmission Date: 20140711
  Serious: No
  Sender: FDA-Public Use
  Company Number: US-AMGEN-USASP2013009015

PATIENT
  Age: 62 Year
  Sex: Female
  Weight: 74.83 kg

DRUGS (10)
  1. ENBREL [Suspect]
     Indication: PRODUCT USED FOR UNKNOWN INDICATION
     Dosage: 50 MG, QWK
  2. METHOTREXATE [Concomitant]
     Dosage: UNK
  3. TYLENOL                            /00020001/ [Concomitant]
     Dosage: 325 MG, UNK
  4. ATENOLOL [Concomitant]
     Dosage: 50 MG, UNK
  5. PRAVASTATIN [Concomitant]
     Dosage: 10 MG, UNK
  6. CLINDAMYCIN [Concomitant]
     Dosage: 150 MG, UNK
  7. LORAZEPAM [Concomitant]
     Dosage: 1 MG, UNK
  8. OMEPRAZOLE [Concomitant]
     Dosage: 10 MG, UNK
  9. LEXAPRO [Concomitant]
     Dosage: 5 MG, UNK
  10. VENTOLIN HFA [Suspect]
     Dosage: UNK

REACTIONS (1)
  - Spinal disorder [Unknown]
